FAERS Safety Report 26066133 (Version 1)
Quarter: 2025Q4

REPORT INFORMATION
  Report Type: Report from Study
  Country: US (occurrence: US)
  Receive Date: 20251119
  Receipt Date: 20251119
  Transmission Date: 20260117
  Serious: Yes (Death, Other)
  Sender: GILEAD
  Company Number: US-GILEAD-2025-0737355

PATIENT
  Age: 8 Year
  Sex: Male

DRUGS (14)
  1. AZTREONAM LYSINE [Suspect]
     Active Substance: AZTREONAM LYSINE
     Indication: Bacterial infection
     Dosage: RECONSTITUTE WITH 1ML SUPPLIED DILUENT AND NEBULIZE 3 TIMES DAILY EVERY OTHER MONTH
     Route: 065
  2. VALPROIC ACID [Concomitant]
     Active Substance: VALPROIC ACID
  3. ALBUTEROL SULFATE [Concomitant]
     Active Substance: ALBUTEROL SULFATE
  4. ERYTHROMYCIN ETHYLSUCCINATE [Concomitant]
     Active Substance: ERYTHROMYCIN ETHYLSUCCINATE
  5. FLUTICASONE PROPIONATE [Concomitant]
     Active Substance: FLUTICASONE PROPIONATE
  6. ROBINUL [Concomitant]
     Active Substance: GLYCOPYRROLATE
  7. DIAZEPAM [Concomitant]
     Active Substance: DIAZEPAM
  8. NEXIUM [Concomitant]
     Active Substance: ESOMEPRAZOLE MAGNESIUM
  9. LORAZEPAM [Concomitant]
     Active Substance: LORAZEPAM
  10. MELATONIN [Concomitant]
     Active Substance: MELATONIN
  11. VALPROATE SODIUM [Concomitant]
     Active Substance: VALPROATE SODIUM
  12. KEFLEX [Concomitant]
     Active Substance: CEPHALEXIN
  13. PEPCID [Concomitant]
     Active Substance: FAMOTIDINE
  14. FYCOMPA [Concomitant]
     Active Substance: PERAMPANEL

REACTIONS (2)
  - Death [Fatal]
  - Product use in unapproved indication [Unknown]
